FAERS Safety Report 10904177 (Version 2)
Quarter: 2015Q3

REPORT INFORMATION
  Report Type: Spontaneous
  Country: US (occurrence: None)
  Receive Date: 20150306
  Receipt Date: 20150706
  Transmission Date: 20151125
  Serious: Yes (Hospitalization, Other)
  Sender: FDA-Public Use
  Company Number: US2015028298

PATIENT
  Sex: Male

DRUGS (5)
  1. PREZISTA [Concomitant]
     Active Substance: DARUNAVIR ETHANOLATE
  2. CELLCEPT (MYCOPHENOLIC ACID) [Concomitant]
  3. EPZICOM [Suspect]
     Active Substance: ABACAVIR SULFATE\LAMIVUDINE
     Indication: PRODUCT USED FOR UNKNOWN INDICATION
     Dosage: 300 MG, 1D
     Dates: start: 1998
  4. TACROLIMUS. [Concomitant]
     Active Substance: TACROLIMUS
  5. NORVIR [Concomitant]
     Active Substance: RITONAVIR

REACTIONS (10)
  - Diarrhoea [None]
  - Renal transplant [None]
  - Abdominal pain [None]
  - Hypersensitivity [None]
  - Malaise [None]
  - Rash pruritic [None]
  - Rash [None]
  - Colorectal cancer [None]
  - Skin cancer [None]
  - Renal failure [None]

NARRATIVE: CASE EVENT DATE: 2000
